FAERS Safety Report 4501515-8 (Version None)
Quarter: 2004Q4

REPORT INFORMATION
  Report Type: 
  Country: None (occurrence: None)
  Receive Date: 20041109
  Receipt Date: 20041025
  Transmission Date: 20050328
  Serious: Yes (Other)
  Sender: FDA-Public Use
  Company Number: 2004239530NO

PATIENT
  Age: 34 Year
  Sex: Female

DRUGS (1)
  1. CELEBREX [Suspect]
     Indication: PSORIASIS
     Dosage: 200 MG, BID, ORAL
     Route: 048

REACTIONS (3)
  - ABORTION SPONTANEOUS [None]
  - DRUG EXPOSURE DURING PREGNANCY [None]
  - PREGNANCY [None]
